FAERS Safety Report 6251548-9 (Version None)
Quarter: 2009Q2

REPORT INFORMATION
  Report Type: 
  Country: None (occurrence: None)
  Receive Date: 20090630
  Receipt Date: 20090626
  Transmission Date: 20091009
  Serious: Yes (Hospitalization)
  Sender: FDA-Public Use
  Company Number: CA-WATSON-2009-04948

PATIENT
  Age: 66 Year
  Sex: Female

DRUGS (1)
  1. TAMOXIFEN CITRATE (WATSON LABORATORIES) [Suspect]
     Indication: BREAST CANCER
     Dosage: UNK
     Route: 042

REACTIONS (5)
  - ACUTE INTERSTITIAL PNEUMONITIS [None]
  - ACUTE RESPIRATORY FAILURE [None]
  - COUGH [None]
  - DYSPNOEA [None]
  - PYREXIA [None]
